FAERS Safety Report 12646162 (Version 1)
Quarter: 2016Q3

REPORT INFORMATION
  Report Type: Report from Study
  Country: US (occurrence: US)
  Receive Date: 20160811
  Receipt Date: 20160811
  Transmission Date: 20161109
  Serious: Yes (Hospitalization, Other)
  Sender: FDA-Public Use
  Company Number: US-TEVA-682276USA

PATIENT
  Sex: Female

DRUGS (3)
  1. COPAXONE [Suspect]
     Active Substance: GLATIRAMER ACETATE
     Indication: MULTIPLE SCLEROSIS
     Route: 058
     Dates: start: 20160518
  2. LISINOPRIL. [Concomitant]
     Active Substance: LISINOPRIL
  3. PROVIGIL [Suspect]
     Active Substance: MODAFINIL
     Route: 065

REACTIONS (4)
  - Ocular hyperaemia [Unknown]
  - Tachycardia [Unknown]
  - Generalised erythema [Unknown]
  - Myocardial infarction [Unknown]
